FAERS Safety Report 12683618 (Version 2)
Quarter: 2016Q3

REPORT INFORMATION
  Report Type: Spontaneous
  Country: US (occurrence: US)
  Receive Date: 20160825
  Receipt Date: 20160929
  Transmission Date: 20161109
  Serious: No
  Sender: FDA-Public Use
  Company Number: US-LUNDBECK-DKLU2017526

PATIENT
  Age: 51 Year
  Sex: Female

DRUGS (3)
  1. NORTHERA [Suspect]
     Active Substance: DROXIDOPA
     Dosage: SCHEDULE A AND TITRATING
     Route: 065
  2. NORTHERA [Suspect]
     Active Substance: DROXIDOPA
     Indication: PRODUCT USED FOR UNKNOWN INDICATION
     Dosage: TITRATION SCHEDULE C (COMPLETE)
     Route: 065
     Dates: start: 20160728
  3. NORTHERA [Suspect]
     Active Substance: DROXIDOPA
     Route: 065

REACTIONS (7)
  - Dizziness [Unknown]
  - Presyncope [Unknown]
  - Hypokinesia [Unknown]
  - Drug dose omission [Recovered/Resolved]
  - Nausea [Unknown]
  - Blood pressure decreased [Unknown]
  - Headache [Unknown]

NARRATIVE: CASE EVENT DATE: 20160803
